FAERS Safety Report 15023184 (Version 4)
Quarter: 2018Q4

REPORT INFORMATION
  Report Type: Report from Study
  Country: JP (occurrence: JP)
  Receive Date: 20180618
  Receipt Date: 20181031
  Transmission Date: 20190204
  Serious: Yes (Hospitalization)
  Sender: FDA-Public Use
  Company Number: JP-EMD SERONO-E2B_90046852

PATIENT
  Age: 77 Year
  Sex: Male
  Weight: 48 kg

DRUGS (4)
  1. RESTAMIN [DIPHENHYDRAMINE] [Concomitant]
     Indication: PROPHYLAXIS
     Dosage: 50 MG, SINGLE
     Route: 048
     Dates: start: 20180530, end: 20180530
  2. THYRADIN-S [Concomitant]
     Active Substance: LEVOTHYROXINE
     Indication: HYPOTHYROIDISM
     Dosage: 50 UG, DAILY
     Route: 048
     Dates: start: 20180227
  3. AVELUMAB [Suspect]
     Active Substance: AVELUMAB
     Indication: TRANSITIONAL CELL CARCINOMA
     Dosage: 497 MG, CYCLIC (EVERY TWO WEEKS)
     Route: 042
     Dates: start: 20170405, end: 20180530
  4. COCARL [Concomitant]
     Active Substance: ACETAMINOPHEN
     Indication: PROPHYLAXIS
     Dosage: 600 MG, SINGLE
     Route: 048
     Dates: start: 20180530, end: 20180530

REACTIONS (1)
  - Interstitial lung disease [Recovered/Resolved]

NARRATIVE: CASE EVENT DATE: 20180530
